FAERS Safety Report 21936322 (Version 1)
Quarter: 2023Q1

REPORT INFORMATION
  Report Type: Spontaneous
  Country: US (occurrence: None)
  Receive Date: 20230131
  Receipt Date: 20230131
  Transmission Date: 20230417
  Serious: No
  Sender: FDA-Public Use
  Company Number: None

PATIENT
  Age: 86 Year
  Sex: Female
  Weight: 80.74 kg

DRUGS (15)
  1. VERZENIO [Suspect]
     Active Substance: ABEMACICLIB
     Indication: Breast cancer female
     Dosage: FREQUENCY : TWICE A DAY;?
     Route: 048
  2. FULVESTRANT [Suspect]
     Active Substance: FULVESTRANT
     Indication: Breast cancer female
     Dosage: OTHER FREQUENCY : Q28DAYS;?
     Route: 030
  3. AMLODIPINE [Concomitant]
     Active Substance: AMLODIPINE BESYLATE
  4. ASPIRIN [Concomitant]
     Active Substance: ASPIRIN
  5. CYCLOPHOSPHAMIDE [Concomitant]
     Active Substance: CYCLOPHOSPHAMIDE
  6. DOCETAXEL [Concomitant]
     Active Substance: DOCETAXEL
  7. FUROSEMIDE [Concomitant]
     Active Substance: FUROSEMIDE
  8. KLOR-CON M20 [Concomitant]
     Active Substance: POTASSIUM CHLORIDE
  9. UNSPECIFIED INGREDIENT [Concomitant]
     Active Substance: UNSPECIFIED INGREDIENT
  10. LOSARTAN [Concomitant]
     Active Substance: LOSARTAN
  11. MEGESTROL [Concomitant]
     Active Substance: MEGESTROL
  12. PROCRIT [Concomitant]
     Active Substance: ERYTHROPOIETIN
  13. XGEVA [Concomitant]
     Active Substance: DENOSUMAB
  14. ZARXIO [Concomitant]
     Active Substance: FILGRASTIM-SNDZ
  15. ZOFRAN [Concomitant]
     Active Substance: ONDANSETRON HYDROCHLORIDE

REACTIONS (1)
  - Neutropenia [None]
